FAERS Safety Report 5668660-5 (Version None)
Quarter: 2008Q1

REPORT INFORMATION
  Report Type: 
  Country: None (occurrence: None)
  Receive Date: 20080312
  Receipt Date: 20080228
  Transmission Date: 20080703
  Serious: Yes (Other)
  Sender: FDA-Public Use
  Company Number: 163-21880-08021758

PATIENT
  Age: 68 Year
  Sex: Male

DRUGS (1)
  1. REVLIMID [Suspect]
     Indication: MULTIPLE MYELOMA
     Dosage: 5 MG, 1 IN 1 D, ORAL
     Route: 048
     Dates: start: 20071031

REACTIONS (7)
  - HYPOAESTHESIA [None]
  - MUSCLE ATROPHY [None]
  - NEUROPATHY PERIPHERAL [None]
  - NEUTROPENIA [None]
  - RENAL OSTEODYSTROPHY [None]
  - T-CELL LYMPHOMA [None]
  - WEIGHT DECREASED [None]
